FAERS Safety Report 23529030 (Version 1)
Quarter: 2024Q1

REPORT INFORMATION
  Report Type: Spontaneous
  Country: US (occurrence: US)
  Receive Date: 20240216
  Receipt Date: 20240216
  Transmission Date: 20240410
  Serious: No
  Sender: FDA-Public Use
  Company Number: US-AUROBINDO-AUR-APL-2023-038399

PATIENT
  Sex: Female

DRUGS (1)
  1. FAMOTIDINE [Suspect]
     Active Substance: FAMOTIDINE
     Indication: Dyspepsia
     Dosage: 2 DOSAGE FORM (2 TABLETS)
     Route: 065
     Dates: start: 20230518

REACTIONS (1)
  - Therapeutic product effect incomplete [Unknown]
